FAERS Safety Report 5858680-X (Version None)
Quarter: 2008Q3

REPORT INFORMATION
  Report Type: 
  Country: None (occurrence: None)
  Receive Date: 20080826
  Receipt Date: 20080820
  Transmission Date: 20090109
  Serious: Yes (Other)
  Sender: FDA-Public Use
  Company Number: US-BOEHRINGER INGELHEIM GMBH, GERMANY-2008-BP-13158BP

PATIENT
  Age: 82 Year
  Sex: Female

DRUGS (3)
  1. COMBIVENT [Suspect]
     Indication: DYSPNOEA
     Route: 055
     Dates: start: 20080801, end: 20080819
  2. VITAMIN B-12 [Concomitant]
  3. CARDIZEM [Concomitant]
     Indication: HYPERTENSION

REACTIONS (2)
  - ANXIETY [None]
  - DYSPNOEA [None]
